FAERS Safety Report 10690373 (Version 1)
Quarter: 2015Q1

REPORT INFORMATION
  Report Type: Spontaneous
  Country: US (occurrence: None)
  Receive Date: 20150102
  Receipt Date: 20150102
  Transmission Date: 20150720
  Serious: No
  Sender: FDA-Public Use
  Company Number: None

PATIENT
  Age: 55 Year
  Sex: Female
  Weight: 58.06 kg

DRUGS (1)
  1. COMPLERA 200-25-300MG [Suspect]
     Active Substance: EMTRICITABINE\RILPIVIRINE HYDROCHLORIDE\TENOFOVIR DISOPROXIL FUMARATE
     Indication: HIV INFECTION
     Dosage: 1, ONCE DAILY, TAKEN BY MOUTH
     Route: 048

REACTIONS (1)
  - Fungal infection [None]

NARRATIVE: CASE EVENT DATE: 20141222
